FAERS Safety Report 19519334 (Version 1)
Quarter: 2021Q3

REPORT INFORMATION
  Report Type: Spontaneous
  Country: US (occurrence: US)
  Receive Date: 20210712
  Receipt Date: 20210712
  Transmission Date: 20211014
  Serious: Yes (Disabling)
  Sender: FDA-Public Use
  Company Number: None

PATIENT
  Age: 36 Year
  Sex: Female

DRUGS (1)
  1. MIRENA [Suspect]
     Active Substance: LEVONORGESTREL
     Dates: start: 20170201, end: 20170221

REACTIONS (3)
  - Pain [None]
  - Muscle spasms [None]
  - Complication of device insertion [None]

NARRATIVE: CASE EVENT DATE: 20170207
